FAERS Safety Report 9651455 (Version 1)
Quarter: 2013Q4

REPORT INFORMATION
  Report Type: Report from Study
  Country: BR (occurrence: BR)
  Receive Date: 20131029
  Receipt Date: 20131029
  Transmission Date: 20140711
  Serious: Yes (Other)
  Sender: FDA-Public Use
  Company Number: BR-ROCHE-1295492

PATIENT
  Sex: 0

DRUGS (3)
  1. PEG-INTERFERON ALFA 2A [Suspect]
     Indication: HEPATITIS C
     Dosage: FOR 48 WEEKS
     Route: 058
  2. RIBAVIRIN [Suspect]
     Indication: HEPATITIS C
     Route: 048
  3. PEGINTERFERON ALFA-2B [Suspect]
     Indication: HEPATITIS C
     Dosage: FOR 48 WEEKS
     Route: 058

REACTIONS (5)
  - Anaemia [Unknown]
  - Fatigue [Unknown]
  - Hepatic failure [Unknown]
  - Hypersensitivity [Unknown]
  - Vasculitis [Unknown]
